FAERS Safety Report 12627494 (Version 7)
Quarter: 2020Q3

REPORT INFORMATION
  Report Type: Report from Study
  Country: KR (occurrence: KR)
  Receive Date: 20160805
  Receipt Date: 20160926
  Transmission Date: 20201104
  Serious: Yes (Hospitalization)
  Sender: FDA-Public Use
  Company Number: KR-PFIZER INC-2016366831

PATIENT
  Age: 56 Year
  Sex: Male

DRUGS (56)
  1. TREMELIMUMAB. [Suspect]
     Active Substance: TREMELIMUMAB
     Indication: OESOPHAGEAL ADENOCARCINOMA
     Dosage: 75 MG, CYCLIC (ONCE EVERY 4 WEEKS)
     Route: 042
     Dates: start: 20160510, end: 20160510
  2. TREMELIMUMAB. [Suspect]
     Active Substance: TREMELIMUMAB
     Dosage: 75 MG, CYCLIC ( ONCE EVERY 4 WEEKS)
     Route: 042
     Dates: start: 20160609, end: 20160609
  3. FLUOROURACIL. [Suspect]
     Active Substance: FLUOROURACIL
     Dosage: 400 MG/M2 BOLUS ON DAY 1, 5FU 1200 MG/M2 IV OVER 24 H DAILY ON DAYS 1 AND 2 OF EACH CYCLE
     Route: 042
     Dates: start: 20160621, end: 20160622
  4. FLUOROURACIL. [Suspect]
     Active Substance: FLUOROURACIL
     Dosage: 400 MG/M2 BOLUS ON DAY 1, 5FU 1200 MG/M2 IV OVER 24 H DAILY ON DAYS 1 AND 2 OF EACH CYCLE
     Route: 042
     Dates: start: 20160706, end: 20160707
  5. FLUOROURACIL. [Suspect]
     Active Substance: FLUOROURACIL
     Dosage: 400 MG/M2 BOLUS ON DAY 1, 5FU 1200 MG/M2 IV OVER 24 H DAILY ON DAYS 1 AND 2 OF EACH CYCLE
     Route: 042
     Dates: start: 20160908, end: 20160908
  6. CEFPODOXIME PROXETIL. [Suspect]
     Active Substance: CEFPODOXIME PROXETIL
     Indication: INFECTION PROPHYLAXIS
     Dosage: 200 MG, 2X/DAY
     Route: 048
     Dates: start: 20160717, end: 20160718
  7. METHYSOL [Concomitant]
     Indication: DIARRHOEA
     Dosage: 55 MG, 1X/DAY
     Route: 042
     Dates: start: 20160712, end: 20160716
  8. TREMELIMUMAB. [Suspect]
     Active Substance: TREMELIMUMAB
     Dosage: 75 MG, CYCLIC ( ONCE EVERY 4 WEEKS)
     Route: 042
     Dates: start: 20160705, end: 20160705
  9. FLUOROURACIL. [Suspect]
     Active Substance: FLUOROURACIL
     Dosage: 400 MG/M2 BOLUS ON DAY 1, 5FU 1200 MG/M2 IV OVER 24 H DAILY ON DAYS 1 AND 2 OF EACH CYCLE
     Route: 042
     Dates: start: 20160511, end: 20160512
  10. OXALIPLATIN. [Suspect]
     Active Substance: OXALIPLATIN
     Dosage: 85 MG/M2 IV OVER 120 MIN ON DAY 1
     Route: 042
     Dates: start: 20160907
  11. CALCIUM FOLINATE [Suspect]
     Active Substance: LEUCOVORIN CALCIUM
     Dosage: 400 MG/M2 IV OVER 120 MINUTES DAY 1
     Route: 042
     Dates: start: 20160705, end: 20160705
  12. MEDI4736 [Suspect]
     Active Substance: DURVALUMAB
     Indication: OESOPHAGEAL ADENOCARCINOMA
     Dosage: 1.5 G, CYCLIC (ONCE EVERY 4 WEEKS)
     Route: 042
     Dates: start: 20160510, end: 20160510
  13. DEXLANSOPRAZOLE [Concomitant]
     Active Substance: DEXLANSOPRAZOLE
     Indication: ABDOMINAL PAIN UPPER
     Dosage: 30.0MG AS REQUIRED
     Route: 048
     Dates: start: 20160609
  14. ALUMINIUM SUCRALFATE [Concomitant]
     Indication: ABDOMINAL PAIN UPPER
     Dosage: 15.0ML AS REQUIRED
     Route: 048
     Dates: start: 20160609
  15. APREPITANT. [Concomitant]
     Active Substance: APREPITANT
     Indication: PREMEDICATION
     Dosage: 125 MG, WEEKLY
     Route: 048
     Dates: start: 20160705
  16. GASTER [Concomitant]
     Active Substance: FAMOTIDINE
     Indication: ABDOMINAL PAIN UPPER
     Dosage: 20 MG, 2X/DAY
     Route: 042
     Dates: start: 20160711, end: 20160716
  17. ARESTAL [Concomitant]
     Active Substance: LOPERAMIDE OXIDE
     Indication: DIARRHOEA
     Dosage: 1.0MG AS REQUIRED
     Route: 048
     Dates: start: 20160710, end: 20160716
  18. SCOPOLAMINE /00008701/ [Concomitant]
     Active Substance: SCOPOLAMINE
     Indication: DIARRHOEA
     Dosage: 10.0MG AS REQUIRED
     Route: 048
     Dates: start: 20160710, end: 20160716
  19. FLUOROURACIL. [Suspect]
     Active Substance: FLUOROURACIL
     Dosage: 400 MG/M2 BOLUS ON DAY 1, 5FU 1200 MG/M2 IV OVER 24 H DAILY ON DAYS 1 AND 2 OF EACH CYCLE
     Route: 042
     Dates: start: 20160524, end: 20160524
  20. FLUOROURACIL. [Suspect]
     Active Substance: FLUOROURACIL
     Dosage: 400 MG/M2 BOLUS ON DAY 1, 5FU 1200 MG/M2 IV OVER 24 H DAILY ON DAYS 1 AND 2 OF EACH CYCLE
     Route: 042
     Dates: start: 20160524, end: 20160525
  21. FLUOROURACIL. [Suspect]
     Active Substance: FLUOROURACIL
     Dosage: 400 MG/M2 BOLUS ON DAY 1, 5FU 1200 MG/M2 IV OVER 24 H DAILY ON DAYS 1 AND 2 OF EACH CYCLE
     Route: 042
     Dates: start: 20160621, end: 20160621
  22. FLUOROURACIL. [Suspect]
     Active Substance: FLUOROURACIL
     Dosage: 400 MG/M2 BOLUS ON DAY 1, 5FU 1200 MG/M2 IV OVER 24 H DAILY ON DAYS 1 AND 2 OF EACH CYCLE
     Route: 042
     Dates: start: 20160707, end: 20160707
  23. OXALIPLATIN. [Suspect]
     Active Substance: OXALIPLATIN
     Indication: OESOPHAGEAL ADENOCARCINOMA
     Dosage: 85 MG/M2 IV OVER 120 MIN ON DAY 1
     Route: 042
     Dates: start: 20160510
  24. OXALIPLATIN. [Suspect]
     Active Substance: OXALIPLATIN
     Dosage: 85 MG/M2 IV OVER 120 MIN ON DAY 1
     Route: 042
     Dates: start: 20160524
  25. OXALIPLATIN. [Suspect]
     Active Substance: OXALIPLATIN
     Dosage: 85 MG/M2 IV OVER 120 MIN ON DAY 1
     Route: 042
     Dates: start: 20160621
  26. OXALIPLATIN. [Suspect]
     Active Substance: OXALIPLATIN
     Dosage: 85 MG/M2 IV OVER 120 MIN ON DAY 1
     Route: 042
     Dates: start: 20160705
  27. CURAN [Concomitant]
     Active Substance: RANITIDINE HYDROCHLORIDE
     Indication: ABDOMINAL PAIN UPPER
     Dosage: 75 MG, 2X/DAY
     Route: 048
     Dates: start: 20160717, end: 20160718
  28. MACPERAN [Concomitant]
     Active Substance: METOCLOPRAMIDE HYDROCHLORIDE
     Dosage: 5.0MG AS REQUIRED
     Route: 048
     Dates: start: 20160525
  29. MUCOPECT [Concomitant]
     Indication: NASOPHARYNGITIS
     Dosage: 30.0MG AS REQUIRED
     Route: 048
     Dates: start: 20160609
  30. APREPITANT. [Concomitant]
     Active Substance: APREPITANT
     Dosage: 80 MG, WEEKLY
     Route: 048
     Dates: start: 20160706
  31. CALCIUM FOLINATE [Suspect]
     Active Substance: LEUCOVORIN CALCIUM
     Dosage: 400 MG/M2 IV OVER 120 MINUTES DAY 1
     Route: 042
     Dates: start: 20160524, end: 20160524
  32. FLUOROURACIL. [Suspect]
     Active Substance: FLUOROURACIL
     Indication: OESOPHAGEAL ADENOCARCINOMA
     Dosage: 400 MG/M2 BOLUS ON DAY 1, 5FU 1200 MG/M2 IV OVER 24 H DAILY ON DAYS 1 AND 2 OF EACH CYCLE
     Route: 042
     Dates: start: 20160510, end: 20160510
  33. FLUOROURACIL. [Suspect]
     Active Substance: FLUOROURACIL
     Dosage: 400 MG/M2 BOLUS ON DAY 1, 5FU 1200 MG/M2 IV OVER 24 H DAILY ON DAYS 1 AND 2 OF EACH CYCLE
     Route: 042
     Dates: start: 20160622, end: 20160623
  34. FLUOROURACIL. [Suspect]
     Active Substance: FLUOROURACIL
     Dosage: 400 MG/M2 BOLUS ON DAY 1, 5FU 1200 MG/M2 IV OVER 24 H DAILY ON DAYS 1 AND 2 OF EACH CYCLE
     Route: 042
     Dates: start: 20160705, end: 20160705
  35. CALCIUM FOLINATE [Suspect]
     Active Substance: LEUCOVORIN CALCIUM
     Dosage: 400 MG/M2 IV OVER 120 MINUTES DAY 1
     Route: 042
     Dates: start: 20160609, end: 20160609
  36. MEDI4736 [Suspect]
     Active Substance: DURVALUMAB
     Dosage: 1.5 G, CYCLIC( ONCE EVERY 4 WEEKS)
     Route: 042
     Dates: start: 20160609, end: 20160609
  37. FLUOROURACIL. [Suspect]
     Active Substance: FLUOROURACIL
     Dosage: 400 MG/M2 BOLUS ON DAY 1, 5FU 1200 MG/M2 IV OVER 24 H DAILY ON DAYS 1 AND 2 OF EACH CYCLE
     Route: 042
     Dates: start: 20160525, end: 20160526
  38. FLUOROURACIL. [Suspect]
     Active Substance: FLUOROURACIL
     Dosage: 400 MG/M2 BOLUS ON DAY 1, 5FU 1200 MG/M2 IV OVER 24 H DAILY ON DAYS 1 AND 2 OF EACH CYCLE
     Route: 042
     Dates: start: 20160609, end: 20160609
  39. CALCIUM FOLINATE [Suspect]
     Active Substance: LEUCOVORIN CALCIUM
     Indication: OESOPHAGEAL ADENOCARCINOMA
     Dosage: 400 MG/M2 IV OVER 120 MINUTES DAY 1
     Route: 042
     Dates: start: 20160510, end: 20160510
  40. CALCIUM FOLINATE [Suspect]
     Active Substance: LEUCOVORIN CALCIUM
     Dosage: 400 MG/M2 IV OVER 120 MINUTES DAY 1
     Route: 042
     Dates: start: 20160621, end: 20160621
  41. CALCIUM FOLINATE [Suspect]
     Active Substance: LEUCOVORIN CALCIUM
     Dosage: 400 MG/M2 IV OVER 120 MINUTES DAY 1
     Route: 042
     Dates: start: 20160907, end: 20160907
  42. MACPERAN [Concomitant]
     Active Substance: METOCLOPRAMIDE HYDROCHLORIDE
     Indication: PREMEDICATION
     Dosage: 30.0MG AS REQUIRED
     Route: 042
     Dates: start: 20160524
  43. TRIDOL [Concomitant]
     Active Substance: TRAMADOL HYDROCHLORIDE
     Indication: PYREXIA
     Dosage: 50 MG, 1X/DAY
     Route: 042
     Dates: start: 20160713, end: 20160713
  44. FLUOROURACIL. [Suspect]
     Active Substance: FLUOROURACIL
     Dosage: 400 MG/M2 BOLUS ON DAY 1, 5FU 1200 MG/M2 IV OVER 24 H DAILY ON DAYS 1 AND 2 OF EACH CYCLE
     Route: 042
     Dates: start: 20160609, end: 20160610
  45. FLUOROURACIL. [Suspect]
     Active Substance: FLUOROURACIL
     Dosage: 400 MG/M2 BOLUS ON DAY 1, 5FU 1200 MG/M2 IV OVER 24 H DAILY ON DAYS 1 AND 2 OF EACH CYCLE
     Route: 042
     Dates: start: 20160610, end: 20160611
  46. FLUOROURACIL. [Suspect]
     Active Substance: FLUOROURACIL
     Dosage: 400 MG/M2 BOLUS ON DAY 1, 5FU 1200 MG/M2 IV OVER 24 H DAILY ON DAYS 1 AND 2 OF EACH CYCLE
     Route: 042
     Dates: start: 20160705, end: 20160706
  47. FLUOROURACIL. [Suspect]
     Active Substance: FLUOROURACIL
     Dosage: 400 MG/M2 BOLUS ON DAY 1, 5FU 1200 MG/M2 IV OVER 24 H DAILY ON DAYS 1 AND 2 OF EACH CYCLE
     Route: 042
     Dates: start: 20160909, end: 20160909
  48. ALOXI [Concomitant]
     Active Substance: PALONOSETRON HYDROCHLORIDE
     Indication: PREMEDICATION
     Dosage: 0.25MG AS REQUIRED
     Route: 042
     Dates: start: 20160524
  49. PENIRAMIN [Concomitant]
     Indication: PREMEDICATION
     Dosage: 2.0MG AS REQUIRED
     Route: 042
     Dates: start: 20160524
  50. MEGESTROL ACETATE. [Concomitant]
     Active Substance: MEGESTROL ACETATE
     Indication: DECREASED APPETITE
     Dosage: 10.0ML AS REQUIRED
     Route: 048
     Dates: start: 20160622
  51. FLUOROURACIL. [Suspect]
     Active Substance: FLUOROURACIL
     Dosage: 400 MG/M2 BOLUS ON DAY 1, 5FU 1200 MG/M2 IV OVER 24 H DAILY ON DAYS 1 AND 2 OF EACH CYCLE
     Route: 042
     Dates: start: 20160510, end: 20160511
  52. FLUOROURACIL. [Suspect]
     Active Substance: FLUOROURACIL
     Dosage: 400 MG/M2 BOLUS ON DAY 1, 5FU 1200 MG/M2 IV OVER 24 H DAILY ON DAYS 1 AND 2 OF EACH CYCLE
     Route: 042
     Dates: start: 20160907, end: 20160907
  53. OXALIPLATIN. [Suspect]
     Active Substance: OXALIPLATIN
     Dosage: 85 MG/M2 IV OVER 120 MIN ON DAY 1
     Route: 042
     Dates: start: 20160609
  54. MEDI4736 [Suspect]
     Active Substance: DURVALUMAB
     Dosage: 1.5 G, CYCLIC (ONCE EVERY 4 WEEKS)
     Route: 042
     Dates: start: 20160705, end: 20160705
  55. DEXAMETHASONE. [Concomitant]
     Active Substance: DEXAMETHASONE
     Indication: PREMEDICATION
     Dosage: 10.0MG AS REQUIRED
     Route: 042
     Dates: start: 20160524
  56. EPOCELIN [Concomitant]
     Indication: INFECTION PROPHYLAXIS
     Dosage: 2 G, 3X/DAY
     Route: 042
     Dates: start: 20160710, end: 20160716

REACTIONS (2)
  - Pyrexia [Recovered/Resolved]
  - Colitis [Recovered/Resolved]

NARRATIVE: CASE EVENT DATE: 20160717
